FAERS Safety Report 15827565 (Version 12)
Quarter: 2020Q1

REPORT INFORMATION
  Report Type: Spontaneous
  Country: US (occurrence: US)
  Receive Date: 20190115
  Receipt Date: 20200214
  Transmission Date: 20200409
  Serious: Yes (Hospitalization, Other)
  Sender: FDA-Public Use
  Company Number: US-OTSUKA-2018_021039

PATIENT
  Sex: Male

DRUGS (37)
  1. KLONOPIN [Concomitant]
     Active Substance: CLONAZEPAM
     Dosage: 0.5 MG, TID
     Route: 065
     Dates: start: 20160927
  2. KLONOPIN [Concomitant]
     Active Substance: CLONAZEPAM
     Dosage: 1 MG, BID
     Route: 048
  3. FLUOXETINE [Concomitant]
     Active Substance: FLUOXETINE HYDROCHLORIDE
     Dosage: 20 MG, QD
     Route: 048
     Dates: start: 20140519
  4. SEROQUEL [Concomitant]
     Active Substance: QUETIAPINE FUMARATE
     Indication: AFFECTIVE DISORDER
     Dosage: 100 MG, UNK
     Route: 065
  5. SEROQUEL [Concomitant]
     Active Substance: QUETIAPINE FUMARATE
     Dosage: 150 MG, UNK
     Route: 065
  6. MELATONIN [Concomitant]
     Active Substance: MELATONIN
     Dosage: 5 MG, UNK
     Route: 048
     Dates: end: 20161121
  7. NICOTINE POLACRILEX [Concomitant]
     Active Substance: NICOTINE
     Indication: SMOKING CESSATION THERAPY
     Dosage: 2 MG, Q2HR
     Route: 048
  8. ABILIFY [Suspect]
     Active Substance: ARIPIPRAZOLE
     Dosage: 2 MG, QD
     Route: 048
     Dates: start: 20150602
  9. ARIPIPRAZOLE. [Concomitant]
     Active Substance: ARIPIPRAZOLE
     Indication: PRODUCT USED FOR UNKNOWN INDICATION
     Dosage: UNK
     Route: 065
     Dates: start: 20150306, end: 20160623
  10. CYMBALTA [Concomitant]
     Active Substance: DULOXETINE HYDROCHLORIDE
     Indication: DEPRESSION
     Dosage: 90 MG, QD
     Route: 048
     Dates: start: 20150602
  11. KLONOPIN [Concomitant]
     Active Substance: CLONAZEPAM
     Dosage: 1 MG, BID
     Route: 065
  12. FLUOXETINE [Concomitant]
     Active Substance: FLUOXETINE HYDROCHLORIDE
     Indication: PRODUCT USED FOR UNKNOWN INDICATION
     Dosage: 40 MG, QD
     Route: 048
  13. PROZAC [Concomitant]
     Active Substance: FLUOXETINE HYDROCHLORIDE
     Indication: PRODUCT USED FOR UNKNOWN INDICATION
     Dosage: 20 MG, UNK
     Route: 065
  14. PANTOPRAZOLE [Concomitant]
     Active Substance: PANTOPRAZOLE
     Indication: GASTROOESOPHAGEAL REFLUX DISEASE
     Dosage: 40 MG, QD
     Route: 048
  15. ABILIFY [Suspect]
     Active Substance: ARIPIPRAZOLE
     Indication: MAJOR DEPRESSION
     Dosage: 5 MG, QD
     Route: 048
     Dates: start: 20131115, end: 201610
  16. NAPROXEN. [Concomitant]
     Active Substance: NAPROXEN
     Indication: PRODUCT USED FOR UNKNOWN INDICATION
     Dosage: 500 MG, BID
     Route: 048
     Dates: start: 20130510
  17. DSS [Concomitant]
     Active Substance: DEXTRAN SULFATE SODIUM
     Indication: CONSTIPATION
     Dosage: 100 MG, UNK
     Route: 048
     Dates: end: 20161122
  18. ABILIFY [Suspect]
     Active Substance: ARIPIPRAZOLE
     Indication: BIPOLAR DISORDER
     Dosage: 2 MG, QD
     Route: 048
     Dates: start: 20110313, end: 201301
  19. CYMBALTA [Concomitant]
     Active Substance: DULOXETINE HYDROCHLORIDE
     Indication: ANXIETY
     Dosage: 90 MG, QD
     Route: 048
  20. SEROQUEL [Concomitant]
     Active Substance: QUETIAPINE FUMARATE
     Dosage: 300 MG, UNK
     Route: 065
  21. BILTRICIDE [Concomitant]
     Active Substance: PRAZIQUANTEL
     Indication: PRODUCT USED FOR UNKNOWN INDICATION
     Dosage: 600 MG, UNK
     Route: 065
  22. CELEBREX [Concomitant]
     Active Substance: CELECOXIB
     Indication: PRODUCT USED FOR UNKNOWN INDICATION
     Dosage: 200 MG, UNK
     Route: 065
  23. CYMBALTA [Concomitant]
     Active Substance: DULOXETINE HYDROCHLORIDE
     Dosage: 60 MG, QD
     Route: 048
     Dates: start: 20110512
  24. CYMBALTA [Concomitant]
     Active Substance: DULOXETINE HYDROCHLORIDE
     Dosage: 30 MG, BID
     Route: 048
     Dates: end: 20161122
  25. KLONOPIN [Concomitant]
     Active Substance: CLONAZEPAM
     Indication: PRODUCT USED FOR UNKNOWN INDICATION
     Dosage: 1 MG, TID
     Route: 048
  26. PRILOSEC [Concomitant]
     Active Substance: OMEPRAZOLE MAGNESIUM
     Indication: PRODUCT USED FOR UNKNOWN INDICATION
     Dosage: 20 MG (EVERY MORNING BEFORE BREAKFAST)
     Route: 048
  27. PROZAC [Concomitant]
     Active Substance: FLUOXETINE HYDROCHLORIDE
     Dosage: 1 DF, QD
     Route: 048
  28. MELATONIN [Concomitant]
     Active Substance: MELATONIN
     Indication: SLEEP DISORDER
     Dosage: 5 MG, QD
     Route: 048
     Dates: end: 20161121
  29. SEROQUEL [Concomitant]
     Active Substance: QUETIAPINE FUMARATE
     Dosage: 50 MG, QD
     Route: 048
     Dates: end: 20161122
  30. VIAGRA [Concomitant]
     Active Substance: SILDENAFIL CITRATE
     Indication: PRODUCT USED FOR UNKNOWN INDICATION
     Dosage: 100 MG, UNK
     Route: 065
  31. HYDROXYZINE PAMOATE. [Concomitant]
     Active Substance: HYDROXYZINE PAMOATE
     Indication: ANXIETY
     Dosage: 50 MG, UNK
     Route: 048
     Dates: end: 20161110
  32. ABILIFY [Suspect]
     Active Substance: ARIPIPRAZOLE
     Indication: ANXIETY
     Dosage: UNK
     Route: 065
  33. CLONAZEPAM. [Concomitant]
     Active Substance: CLONAZEPAM
     Indication: PRODUCT USED FOR UNKNOWN INDICATION
     Dosage: 1 MG, BID
     Route: 048
     Dates: start: 20150602
  34. PRILOSEC [Concomitant]
     Active Substance: OMEPRAZOLE MAGNESIUM
     Dosage: 40 MG, BID
     Route: 048
  35. SEROQUEL [Concomitant]
     Active Substance: QUETIAPINE FUMARATE
     Dosage: 300 MG, QD
     Route: 048
  36. CELEBREX [Concomitant]
     Active Substance: CELECOXIB
     Dosage: 1 DF, QD
     Route: 048
  37. HYDROXYZINE PAMOATE. [Concomitant]
     Active Substance: HYDROXYZINE PAMOATE
     Indication: INSOMNIA
     Dosage: 100 MG, UNK
     Route: 048

REACTIONS (55)
  - Condition aggravated [Recovered/Resolved]
  - Haemoglobin decreased [Not Recovered/Not Resolved]
  - Mania [Unknown]
  - Lipid metabolism disorder [Unknown]
  - Insomnia [Unknown]
  - Upper gastrointestinal haemorrhage [Recovered/Resolved]
  - Drug dependence [Unknown]
  - Vomiting [Unknown]
  - Red cell distribution width increased [Not Recovered/Not Resolved]
  - Antisocial behaviour [Unknown]
  - Cough [Unknown]
  - Palpitations [Unknown]
  - Respiratory failure [Unknown]
  - Mental disorder [Unknown]
  - Homicidal ideation [Recovering/Resolving]
  - Pneumonia aspiration [Unknown]
  - Injury [Unknown]
  - Nephrolithiasis [Unknown]
  - Chills [Unknown]
  - Sexual dysfunction [Recovered/Resolved]
  - Compulsive sexual behaviour [Recovered/Resolved]
  - Diarrhoea [Unknown]
  - Squamous cell carcinoma [Unknown]
  - Prostate cancer [Unknown]
  - Seizure [Unknown]
  - Neutrophil count increased [Unknown]
  - Abdominal pain [Unknown]
  - Sinus tachycardia [Unknown]
  - Alcohol abuse [Unknown]
  - Encephalopathy [Unknown]
  - Suicide attempt [Recovered/Resolved]
  - Red blood cell count decreased [Not Recovered/Not Resolved]
  - Nausea [Unknown]
  - Fatigue [Unknown]
  - Loss of employment [Unknown]
  - Acute respiratory distress syndrome [Unknown]
  - Suicidal ideation [Recovered/Resolved]
  - Anhedonia [Unknown]
  - Protein total decreased [Unknown]
  - Emotional distress [Unknown]
  - Duodenitis [Unknown]
  - Arthralgia [Unknown]
  - Obsessive-compulsive disorder [Unknown]
  - Gambling disorder [Recovered/Resolved]
  - Divorced [Unknown]
  - Sepsis [Unknown]
  - Drug dependence [Recovered/Resolved]
  - Melanocytic naevus [Unknown]
  - Upper respiratory tract infection [Unknown]
  - Pain [Unknown]
  - Anxiety [Unknown]
  - Product use in unapproved indication [Unknown]
  - Depression [Unknown]
  - Economic problem [Unknown]
  - Homeless [Unknown]

NARRATIVE: CASE EVENT DATE: 2011
